FAERS Safety Report 5899999-6 (Version None)
Quarter: 2008Q3

REPORT INFORMATION
  Report Type: 
  Country: None (occurrence: None)
  Receive Date: 20080925
  Receipt Date: 20080925
  Transmission Date: 20090109
  Serious: No
  Sender: FDA-Public Use
  Company Number: None

PATIENT
  Age: 50 Year
  Sex: Male
  Weight: 89.81 kg

DRUGS (1)
  1. FENTANYL [Suspect]
     Indication: PAIN
     Dosage: 75 MCG OTHER TOP
     Route: 061
     Dates: start: 20080612, end: 20080911

REACTIONS (1)
  - DERMATITIS CONTACT [None]
